FAERS Safety Report 6249956-5 (Version None)
Quarter: 2009Q2

REPORT INFORMATION
  Report Type: 
  Country: None (occurrence: None)
  Receive Date: 20090625
  Receipt Date: 20090610
  Transmission Date: 20091009
  Serious: Yes (Death)
  Sender: FDA-Public Use
  Company Number: MC200900199

PATIENT
  Age: 71 Year
  Sex: Male
  Weight: 87.5 kg

DRUGS (5)
  1. ANGIOMAX [Suspect]
     Indication: PERCUTANEOUS CORONARY INTERVENTION
     Dosage: 0.75 MG/KG, BOLUS, INTRAVENOUS, 1.75 MG/KG,HR
     Route: 042
     Dates: start: 20090501, end: 20090501
  2. ANGIOMAX [Suspect]
     Indication: PERCUTANEOUS CORONARY INTERVENTION
     Dosage: 0.75 MG/KG, BOLUS, INTRAVENOUS, 1.75 MG/KG,HR
     Route: 042
     Dates: start: 20090501, end: 20090501
  3. TNKASE [Suspect]
     Dates: start: 20090501, end: 20090501
  4. LOVENOX [Suspect]
     Dates: start: 20090501, end: 20090501
  5. REOPRO [Suspect]
     Indication: PERCUTANEOUS CORONARY INTERVENTION
     Dosage: INTRAVENOUS
     Route: 042
     Dates: start: 20090501, end: 20090501

REACTIONS (4)
  - CARDIAC ARREST [None]
  - CHOKING [None]
  - PULMONARY HAEMORRHAGE [None]
  - RESPIRATORY ARREST [None]
